FAERS Safety Report 15107888 (Version 1)
Quarter: 2018Q3

REPORT INFORMATION
  Report Type: Spontaneous
  Country: US (occurrence: US)
  Receive Date: 20180704
  Receipt Date: 20180704
  Transmission Date: 20181010
  Serious: Yes (Hospitalization)
  Sender: FDA-Public Use
  Company Number: US-TEVA-2018-US-919541

PATIENT
  Age: 53 Year
  Sex: Female
  Weight: 83.99 kg

DRUGS (11)
  1. ALBUTEROL HFA [Concomitant]
     Active Substance: ALBUTEROL SULFATE
     Dates: start: 20121016
  2. AMITRIPTYLINE [Concomitant]
     Active Substance: AMITRIPTYLINE
     Dates: start: 20180110
  3. TORSEMIDE. [Concomitant]
     Active Substance: TORSEMIDE
     Dates: start: 20170710
  4. FERROUS GLUCONATE [Concomitant]
     Active Substance: FERROUS GLUCONATE
     Dates: start: 20180115
  5. SOTALOL. [Concomitant]
     Active Substance: SOTALOL
     Dates: start: 20070828
  6. AMOXICILLIN. [Concomitant]
     Active Substance: AMOXICILLIN
     Dates: start: 20180504, end: 20180504
  7. IBUPROFEN. [Concomitant]
     Active Substance: IBUPROFEN
     Dates: start: 20171019
  8. METOPROLOL. [Concomitant]
     Active Substance: METOPROLOL
     Dates: start: 20151130
  9. SPIRONOLACTONE. [Concomitant]
     Active Substance: SPIRONOLACTONE
     Dates: start: 20120917
  10. TADALAFIL [Concomitant]
     Active Substance: TADALAFIL
     Dates: start: 20140620
  11. METOCLOPRAMIDE. [Suspect]
     Active Substance: METOCLOPRAMIDE
     Indication: NAUSEA
     Dosage: 30 MILLIGRAM DAILY;
     Route: 065
     Dates: start: 20180425, end: 20180513

REACTIONS (1)
  - Atrial flutter [Recovered/Resolved with Sequelae]

NARRATIVE: CASE EVENT DATE: 20180511
